FAERS Safety Report 7387338-3 (Version None)
Quarter: 2011Q1

REPORT INFORMATION
  Report Type: 
  Country: None (occurrence: None)
  Receive Date: 20110331
  Receipt Date: 20110321
  Transmission Date: 20110831
  Serious: Yes (Other)
  Sender: FDA-Public Use
  Company Number: US-SANOFI-AVENTIS-2011SA017612

PATIENT
  Age: 52 Year
  Sex: Female

DRUGS (6)
  1. PETHIDINE HYDROCHLORIDE [Suspect]
     Indication: ANAESTHESIA
     Route: 042
  2. MIDAZOLAM HCL [Interacting]
     Indication: ANAESTHESIA
     Route: 042
  3. HYOSCYAMINE [Concomitant]
     Indication: ANAESTHESIA
     Route: 042
  4. CYMBALTA [Interacting]
     Indication: DEPRESSION
     Route: 065
  5. CYMBALTA [Interacting]
     Route: 065
  6. IBANDRONIC ACID [Concomitant]
     Indication: OSTEOPOROSIS PROPHYLAXIS
     Route: 065

REACTIONS (10)
  - NAUSEA [None]
  - SEROTONIN SYNDROME [None]
  - CONFUSIONAL STATE [None]
  - CHILLS [None]
  - AGITATION [None]
  - DRUG INTERACTION [None]
  - HEADACHE [None]
  - HYPERHIDROSIS [None]
  - MYOCLONUS [None]
  - AMNESIA [None]
